FAERS Safety Report 9411024 (Version 1)
Quarter: 2013Q3

REPORT INFORMATION
  Report Type: Spontaneous
  Country: US (occurrence: US)
  Receive Date: 20130719
  Receipt Date: 20130719
  Transmission Date: 20140515
  Serious: No
  Sender: FDA-Public Use
  Company Number: US-TEVA-418044USA

PATIENT
  Sex: Female
  Weight: 86.26 kg

DRUGS (1)
  1. ENJUVIA [Suspect]
     Indication: MENOPAUSAL SYMPTOMS
     Route: 048
     Dates: start: 2012

REACTIONS (2)
  - Dyspnoea [Unknown]
  - Fatigue [Unknown]
